FAERS Safety Report 11595059 (Version 1)
Quarter: 2015Q4

REPORT INFORMATION
  Report Type: Spontaneous
  Country: US (occurrence: US)
  Receive Date: 20151005
  Receipt Date: 20151005
  Transmission Date: 20160304
  Serious: Yes (Death, Other)
  Sender: FDA-Public Use
  Company Number: US-ASTRAZENECA-2015SE93839

PATIENT
  Age: 30134 Day
  Sex: Male
  Weight: 70.3 kg

DRUGS (2)
  1. BABY ASPIRIN [Concomitant]
     Active Substance: ASPIRIN
     Indication: ADJUVANT THERAPY
     Dosage: DAILY
     Route: 065
  2. NEXIUM [Suspect]
     Active Substance: ESOMEPRAZOLE MAGNESIUM
     Indication: GASTROOESOPHAGEAL REFLUX DISEASE
     Route: 048

REACTIONS (1)
  - Amyotrophic lateral sclerosis [Fatal]
